FAERS Safety Report 15906747 (Version 1)
Quarter: 2019Q1

REPORT INFORMATION
  Report Type: Spontaneous
  Country: US (occurrence: US)
  Receive Date: 20190111
  Receipt Date: 20190111
  Transmission Date: 20190417
  Serious: Yes (Life-Threatening)
  Sender: FDA-Public Use
  Company Number: None

PATIENT
  Age: 59 Year
  Sex: Female

DRUGS (1)
  1. SYNALAR [Suspect]
     Active Substance: FLUOCINOLONE ACETONIDE
     Indication: RASH
     Dosage: ?          OTHER DOSE: 1 APPLICATION;?
     Dates: start: 20190104

REACTIONS (1)
  - Anaphylactic reaction [None]

NARRATIVE: CASE EVENT DATE: 20190104
